FAERS Safety Report 8933635 (Version 1)
Quarter: 2012Q4

REPORT INFORMATION
  Report Type: 
  Country: US (occurrence: US)
  Receive Date: 20121128
  Receipt Date: 20121128
  Transmission Date: 20130627
  Serious: No
  Sender: FDA-Public Use
  Company Number: US-ASTRAZENECA-2012SE86776

PATIENT
  Age: 39 Year
  Sex: Female
  Weight: 70.8 kg

DRUGS (1)
  1. NEXIUM [Suspect]
     Indication: GASTROOESOPHAGEAL REFLUX DISEASE
     Route: 048
     Dates: start: 201209

REACTIONS (5)
  - Gastrooesophageal reflux disease [Unknown]
  - Abdominal distension [Unknown]
  - Oesophageal disorder [Unknown]
  - Eating disorder [Unknown]
  - Flatulence [Unknown]
